FAERS Safety Report 16531229 (Version 2)
Quarter: 2019Q3

REPORT INFORMATION
  Report Type: Spontaneous
  Country: US (occurrence: US)
  Receive Date: 20190705
  Receipt Date: 20190724
  Transmission Date: 20191004
  Serious: Yes (Death, Other)
  Sender: FDA-Public Use
  Company Number: PHHY2019US152129

PATIENT
  Age: 55 Year
  Sex: Male

DRUGS (12)
  1. CARBOPLATIN. [Suspect]
     Active Substance: CARBOPLATIN
     Indication: HEPATOSPLENIC T-CELL LYMPHOMA
     Route: 065
  2. ROMIDEPSIN. [Suspect]
     Active Substance: ROMIDEPSIN
     Indication: HEPATOSPLENIC T-CELL LYMPHOMA
     Dosage: UNK
     Route: 065
  3. ALEMTUZUMAB [Suspect]
     Active Substance: ALEMTUZUMAB
     Indication: HEPATOSPLENIC T-CELL LYMPHOMA
     Route: 065
  4. VINCRISTINE [Suspect]
     Active Substance: VINCRISTINE
     Indication: HEPATOSPLENIC T-CELL LYMPHOMA
     Dosage: UNK
     Route: 065
  5. IFOSFAMIDE. [Suspect]
     Active Substance: IFOSFAMIDE
     Indication: HEPATOSPLENIC T-CELL LYMPHOMA
     Route: 065
  6. CLADRIBINE. [Suspect]
     Active Substance: CLADRIBINE
     Indication: HEPATOSPLENIC T-CELL LYMPHOMA
     Route: 065
  7. AZATHIOPRINE. [Suspect]
     Active Substance: AZATHIOPRINE
     Indication: CROHN^S DISEASE
     Route: 042
  8. PREDNISONE. [Suspect]
     Active Substance: PREDNISONE
     Indication: CHEMOTHERAPY
     Route: 065
  9. CYCLOPHOSPHAMIDE. [Suspect]
     Active Substance: CYCLOPHOSPHAMIDE
     Indication: HEPATOSPLENIC T-CELL LYMPHOMA
     Route: 065
  10. ETOPOSIDE. [Suspect]
     Active Substance: ETOPOSIDE
     Indication: HEPATOSPLENIC T-CELL LYMPHOMA
     Route: 065
  11. ADALIMUMAB [Suspect]
     Active Substance: ADALIMUMAB
     Indication: CROHN^S DISEASE
     Route: 065
  12. DOXORUBICIN [Suspect]
     Active Substance: DOXORUBICIN
     Indication: HEPATOSPLENIC T-CELL LYMPHOMA
     Route: 065

REACTIONS (14)
  - Pancytopenia [Unknown]
  - Hepatosplenomegaly [Not Recovered/Not Resolved]
  - Malignant neoplasm progression [Fatal]
  - Hyperferritinaemia [Fatal]
  - Hepatomegaly [Fatal]
  - Epistaxis [Unknown]
  - Haemophagocytic lymphohistiocytosis [Fatal]
  - Splenomegaly [Fatal]
  - Refractory cancer [Unknown]
  - Pyrexia [Fatal]
  - Hepatosplenic T-cell lymphoma [Fatal]
  - Disease recurrence [Unknown]
  - Lethargy [Unknown]
  - Cytopenia [Fatal]

NARRATIVE: CASE EVENT DATE: 2016
